FAERS Safety Report 17501178 (Version 1)
Quarter: 2020Q1

REPORT INFORMATION
  Report Type: Spontaneous
  Country: FR (occurrence: FR)
  Receive Date: 20200305
  Receipt Date: 20200305
  Transmission Date: 20200409
  Serious: Yes (Hospitalization)
  Sender: FDA-Public Use
  Company Number: FR-PFIZER INC-2020094658

PATIENT
  Age: 37 Year
  Sex: Male

DRUGS (3)
  1. STREPSILS LIDOCAINE, PASTILLE [Suspect]
     Active Substance: AMYLMETACRESOL\DICHLOROBENZYL ALCOHOL\LIDOCAINE
     Indication: NASOPHARYNGITIS
     Dosage: UNK (TAKING ONE TABLET)
     Route: 048
     Dates: start: 20200101, end: 20200101
  2. IBUPROFEN. [Suspect]
     Active Substance: IBUPROFEN
     Indication: NASOPHARYNGITIS
     Dosage: 1 DF, UNK (ONE TABLET)
     Route: 048
     Dates: start: 20200101, end: 20200101
  3. ESOMEPRAZOLE. [Concomitant]
     Active Substance: ESOMEPRAZOLE MAGNESIUM
     Dosage: UNK

REACTIONS (4)
  - Drug hypersensitivity [Recovered/Resolved]
  - Pruritus [Recovered/Resolved]
  - Erythema [Recovered/Resolved]
  - Face oedema [Recovered/Resolved]

NARRATIVE: CASE EVENT DATE: 20200101
